FAERS Safety Report 6448913-3 (Version None)
Quarter: 2009Q4

REPORT INFORMATION
  Report Type: 
  Country: None (occurrence: None)
  Receive Date: 20091120
  Receipt Date: 20091110
  Transmission Date: 20100525
  Serious: Yes (Other)
  Sender: FDA-Public Use
  Company Number: US-PFIZER INC-2009266732

PATIENT
  Sex: Female
  Weight: 56.689 kg

DRUGS (2)
  1. GEODON [Suspect]
     Indication: DEPRESSION
     Dosage: 20 MG, UNK
  2. LEXAPRO [Concomitant]
     Indication: DEPRESSION
     Dosage: 20 MG, DAILY
     Route: 048

REACTIONS (5)
  - AGITATION [None]
  - FATIGUE [None]
  - HYPERTHYROIDISM [None]
  - SOMNOLENCE [None]
  - THYROIDITIS [None]
